FAERS Safety Report 9151884 (Version 2)
Quarter: 2013Q2

REPORT INFORMATION
  Report Type: Spontaneous
  Country: AR (occurrence: AR)
  Receive Date: 20130308
  Receipt Date: 20130521
  Transmission Date: 20140414
  Serious: Yes (Congenital Anomaly, Other)
  Sender: FDA-Public Use
  Company Number: AR-TEVA-390045ISR

PATIENT
  Age: 0 Year
  Sex: Male

DRUGS (2)
  1. LAMIVUDINE W/ ZIDOVUDINE [Suspect]
     Route: 065
  2. LOPINAVIR W/RITONAVIR [Suspect]
     Route: 065

REACTIONS (2)
  - Ventricular septal defect [Unknown]
  - Birth trauma [Unknown]
